FAERS Safety Report 6643038-6 (Version None)
Quarter: 2010Q1

REPORT INFORMATION
  Report Type: 
  Country: None (occurrence: None)
  Receive Date: 20100319
  Receipt Date: 20100309
  Transmission Date: 20100710
  Serious: Yes (Death)
  Sender: FDA-Public Use
  Company Number: B0641215A

PATIENT
  Sex: Female

DRUGS (1)
  1. TYVERB [Suspect]
     Route: 065

REACTIONS (2)
  - ABDOMINAL SYMPTOM [None]
  - INFARCTION [None]
